FAERS Safety Report 8160195-3 (Version None)
Quarter: 2012Q1

REPORT INFORMATION
  Report Type: 
  Country: None (occurrence: None)
  Receive Date: 20120223
  Receipt Date: 20120222
  Transmission Date: 20120608
  Serious: Yes (Death, Hospitalization)
  Sender: FDA-Public Use
  Company Number: TW-EISAI INC-E2020-10233-SPO-TW

PATIENT
  Age: 71 Year
  Sex: Female
  Weight: 78 kg

DRUGS (15)
  1. VALSARTAN [Concomitant]
     Dosage: 80 MG
     Route: 048
  2. ESOMEPRAZOLE MUPS [Concomitant]
     Dosage: 40 MG
     Route: 048
  3. BISOPROLOL FUMARATE [Concomitant]
     Dosage: 5 MG
     Route: 048
  4. ROSUVASTATIN [Concomitant]
     Dosage: 10 MG
     Route: 048
  5. SENNOSIDE A+B CALCIUM [Concomitant]
     Dosage: 12 MG
     Route: 048
  6. ARICEPT [Suspect]
     Route: 048
     Dates: start: 20110419, end: 20120107
  7. ALENDRONIC ACID [Concomitant]
     Route: 048
  8. TRAZODONE HYDROCHLORIDE [Concomitant]
     Dosage: 50 MG
     Route: 048
  9. ASPIRIN [Concomitant]
     Dosage: 100 MG
     Route: 048
  10. CLOPIDOGREL [Concomitant]
     Dosage: 75 MG
     Route: 048
  11. INSULIN GLARGINE [Concomitant]
     Dosage: 8 UNITS
     Route: 058
  12. ARICEPT [Suspect]
     Route: 048
     Dates: start: 20110322, end: 20110418
  13. JANUMET [Concomitant]
     Dosage: 100 MG/1000 MG
     Route: 048
  14. PIRACETAM [Concomitant]
     Dosage: 2400 MG
     Route: 048
  15. ISOSORBIDE-5-MONONITRATE CR [Concomitant]
     Dosage: 60 MG
     Route: 048

REACTIONS (6)
  - PYREXIA [None]
  - SEPSIS [None]
  - CHILLS [None]
  - ALTERED STATE OF CONSCIOUSNESS [None]
  - ABDOMINAL PAIN [None]
  - CHOLECYSTITIS ACUTE [None]
